FAERS Safety Report 8488430-2 (Version None)
Quarter: 2012Q2

REPORT INFORMATION
  Report Type: 
  Country: None (occurrence: None)
  Receive Date: 20120626
  Receipt Date: 20120611
  Transmission Date: 20120825
  Serious: Yes (Other)
  Sender: FDA-Public Use
  Company Number: 2011MA007911

PATIENT
  Sex: Female

DRUGS (28)
  1. METOCLOPRAMIDE [Suspect]
     Indication: OESOPHAGEAL SPASM
     Dates: start: 19850601, end: 20051201
  2. FISH OIL [Concomitant]
  3. ACIDOPHILLUS [Concomitant]
  4. ARTANE [Concomitant]
  5. ASPIRIN [Concomitant]
  6. DILTIAZEM HYDROCHOLORIDE [Concomitant]
  7. HYOSCYAMINE [Concomitant]
  8. TETRABENAZINE [Concomitant]
  9. COGENTIN [Concomitant]
  10. LAMISIL [Concomitant]
  11. LEVBID [Concomitant]
  12. PROZAC [Concomitant]
  13. AMANTADINE HCL [Concomitant]
  14. COZAAR [Concomitant]
  15. DETROL [Concomitant]
  16. XANAX [Concomitant]
  17. MULTI-VITAMINS [Concomitant]
  18. CLOZARIL [Concomitant]
  19. PREVACID [Concomitant]
  20. DIPHENHYDRAMINE HCL [Concomitant]
  21. LIPITOR [Concomitant]
  22. VIGAMOX [Concomitant]
  23. WELLBUTRIN [Concomitant]
  24. ALCAN [Concomitant]
  25. HALDOL [Concomitant]
  26. COLACE [Concomitant]
  27. VALIUM [Concomitant]
  28. ZETIA [Concomitant]

REACTIONS (22)
  - DYSPHAGIA [None]
  - HYPOPHAGIA [None]
  - MUSCULAR WEAKNESS [None]
  - ECONOMIC PROBLEM [None]
  - RASH MACULAR [None]
  - EXTRAPYRAMIDAL DISORDER [None]
  - CHOKING [None]
  - GAIT DISTURBANCE [None]
  - MOVEMENT DISORDER [None]
  - NUCLEAR MAGNETIC RESONANCE IMAGING BRAIN ABNORMAL [None]
  - LUMBAR SPINAL STENOSIS [None]
  - RESTING TREMOR [None]
  - CEREBRAL VENTRICLE DILATATION [None]
  - TARDIVE DYSKINESIA [None]
  - PARKINSONISM [None]
  - POST PROCEDURAL COMPLICATION [None]
  - WEIGHT DECREASED [None]
  - SPEECH DISORDER [None]
  - DYSTONIA [None]
  - DYSKINESIA [None]
  - TREMOR [None]
  - SCAR [None]
